FAERS Safety Report 9812195 (Version 2)
Quarter: 2014Q1

REPORT INFORMATION
  Report Type: Spontaneous
  Country: FR (occurrence: FR)
  Receive Date: 20140112
  Receipt Date: 20140124
  Transmission Date: 20141002
  Serious: Yes (Death)
  Sender: FDA-Public Use
  Company Number: FR-ROCHE-1332103

PATIENT
  Age: 47 Year
  Sex: Male
  Weight: 60 kg

DRUGS (7)
  1. ZELBORAF [Suspect]
     Indication: MALIGNANT MELANOMA
     Dosage: 240 MG
     Route: 048
     Dates: start: 20140104, end: 20140106
  2. MEDROL [Concomitant]
     Route: 048
     Dates: start: 201312, end: 20140106
  3. OXYCONTIN [Concomitant]
     Route: 048
     Dates: start: 201312, end: 20140106
  4. OXYNORM [Concomitant]
     Route: 048
     Dates: start: 201312, end: 20140106
  5. KARDEGIC [Concomitant]
     Indication: PLATELET AGGREGATION
     Route: 048
     Dates: start: 201309, end: 20140106
  6. ESOMEPRAZOLE [Concomitant]
     Route: 048
     Dates: start: 201309, end: 20140106
  7. PANTOPRAZOLE [Concomitant]
     Route: 048
     Dates: start: 201309, end: 20140106

REACTIONS (1)
  - Death [Fatal]
